FAERS Safety Report 4755748-6 (Version None)
Quarter: 2005Q3

REPORT INFORMATION
  Report Type: 
  Country: None (occurrence: None)
  Receive Date: 20050830
  Receipt Date: 20050720
  Transmission Date: 20060218
  Serious: No
  Sender: FDA-Public Use
  Company Number: US-BRISTOL-MYERS SQUIBB COMPANY-13044409

PATIENT
  Sex: Female

DRUGS (7)
  1. ABILIFY [Suspect]
     Indication: MAJOR DEPRESSION
     Route: 048
     Dates: start: 20050101, end: 20050401
  2. ABILIFY [Suspect]
     Indication: POST-TRAUMATIC STRESS DISORDER
     Route: 048
     Dates: start: 20050101, end: 20050401
  3. ABILIFY [Suspect]
     Indication: DISSOCIATIVE DISORDER
     Route: 048
     Dates: start: 20050101, end: 20050401
  4. AMBIEN [Concomitant]
  5. DOXEPIN HCL [Concomitant]
  6. FLUOXETINE [Concomitant]
  7. NEURONTIN [Concomitant]

REACTIONS (1)
  - TARDIVE DYSKINESIA [None]
